FAERS Safety Report 4733687-4 (Version None)
Quarter: 2005Q3

REPORT INFORMATION
  Report Type: 
  Country: None (occurrence: None)
  Receive Date: 20050729
  Receipt Date: 20050609
  Transmission Date: 20060218
  Serious: No
  Sender: FDA-Public Use
  Company Number: COT_0089_2005

PATIENT
  Age: 48 Year
  Sex: Female
  Weight: 89.8122 kg

DRUGS (14)
  1. VENTAVIS [Suspect]
     Indication: PULMONARY HYPERTENSION
     Dosage: SEE IMAGE
     Route: 055
     Dates: start: 20050601, end: 20050602
  2. VENTAVIS [Suspect]
     Indication: PULMONARY HYPERTENSION
     Dosage: SEE IMAGE
     Route: 055
     Dates: start: 20050603
  3. VENTAVIS [Suspect]
  4. NIFEDIPINE [Concomitant]
  5. TYLENOL (CAPLET) [Concomitant]
  6. XANAX [Concomitant]
  7. LASIX [Concomitant]
  8. SYNTHROID [Concomitant]
  9. PROTONIX [Concomitant]
  10. GLUCOTROL [Concomitant]
  11. INDERAL [Concomitant]
  12. COUMADIN [Concomitant]
  13. ALLEGRA [Concomitant]
  14. VASOTEC RPD [Concomitant]

REACTIONS (6)
  - BACK PAIN [None]
  - CHEST PAIN [None]
  - DYSPNOEA [None]
  - HEADACHE [None]
  - PALPITATIONS [None]
  - PRURITUS [None]
